FAERS Safety Report 7546781-X (Version None)
Quarter: 2011Q2

REPORT INFORMATION
  Report Type: 
  Country: None (occurrence: None)
  Receive Date: 20110524
  Receipt Date: 20110301
  Transmission Date: 20111010
  Serious: No
  Sender: FDA-Public Use
  Company Number: 028454

PATIENT
  Sex: Female

DRUGS (2)
  1. CIMZIA [Suspect]
     Indication: CROHN'S DISEASE
     Dosage: (SUBCUTANEOUS)
     Route: 058
     Dates: start: 20100909
  2. MIRALAX [Concomitant]

REACTIONS (5)
  - NAUSEA [None]
  - DIZZINESS [None]
  - CONSTIPATION [None]
  - HEADACHE [None]
  - FREQUENT BOWEL MOVEMENTS [None]
